FAERS Safety Report 6963878-3 (Version None)
Quarter: 2010Q3

REPORT INFORMATION
  Report Type: 
  Country: None (occurrence: None)
  Receive Date: 20100831
  Receipt Date: 20100818
  Transmission Date: 20110219
  Serious: Yes (Hospitalization)
  Sender: FDA-Public Use
  Company Number: 017441

PATIENT
  Sex: Male

DRUGS (5)
  1. KEPPRA [Suspect]
     Indication: GENERALISED NON-CONVULSIVE EPILEPSY
     Dosage: 3000 MG, (1500 MG BID, 3X500 MG IN THE MORNING + 3X500 MG IN THE EVENING)
     Dates: start: 20080701
  2. VIMPAT [Suspect]
     Indication: EPILEPSY
     Dosage: 50 MG BID, MORNING + EVENING, DOSE UPTITRATED
  3. QUINAPRIL [Concomitant]
  4. BISOPROLOL [Concomitant]
  5. REPAGLINIDE [Concomitant]

REACTIONS (5)
  - BLOOD GLUCOSE INCREASED [None]
  - HAEMORRHAGE [None]
  - HEPATOTOXICITY [None]
  - LACERATION [None]
  - LIVER INJURY [None]
